FAERS Safety Report 4769100-0 (Version None)
Quarter: 2005Q3

REPORT INFORMATION
  Report Type: 
  Country: None (occurrence: None)
  Receive Date: 20050912
  Receipt Date: 20040729
  Transmission Date: 20060218
  Serious: Yes (Hospitalization)
  Sender: FDA-Public Use
  Company Number: 2004-BP-04603BP

PATIENT
  Age: 66 Year
  Sex: Female

DRUGS (5)
  1. VIRAMUNE [Suspect]
     Indication: HIV INFECTION
     Dosage: 200 MG , PO
     Route: 048
     Dates: start: 20030324, end: 20030430
  2. EPIVIR [Concomitant]
  3. VIREAD [Concomitant]
  4. LEVOFLOXACIN [Concomitant]
  5. KEFLEX [Concomitant]

REACTIONS (1)
  - STEVENS-JOHNSON SYNDROME [None]
